FAERS Safety Report 8167998-X (Version None)
Quarter: 2012Q1

REPORT INFORMATION
  Report Type: 
  Country: None (occurrence: None)
  Receive Date: 20120227
  Receipt Date: 20120223
  Transmission Date: 20120608
  Serious: Yes (Other)
  Sender: FDA-Public Use
  Company Number: DE-GLAXOSMITHKLINE-D0074428A

PATIENT
  Sex: Male
  Weight: 90 kg

DRUGS (3)
  1. POTIGA [Suspect]
     Indication: EPILEPSY
     Route: 048
     Dates: start: 20111115
  2. KEPPRA [Concomitant]
     Indication: EPILEPSY
     Dosage: 1750MG TWICE PER DAY
     Route: 065
     Dates: start: 20080813
  3. VIMPAT [Concomitant]
     Indication: EPILEPSY
     Dosage: 550MG PER DAY
     Route: 065
     Dates: start: 20100925

REACTIONS (2)
  - EPILEPSY [None]
  - CONVULSION [None]
